FAERS Safety Report 10072617 (Version 3)
Quarter: 2014Q2

REPORT INFORMATION
  Report Type: Spontaneous
  Country: FR (occurrence: FR)
  Receive Date: 20140411
  Receipt Date: 20140417
  Transmission Date: 20141212
  Serious: Yes (Other)
  Sender: FDA-Public Use
  Company Number: FR-009507513-1403FRA007850

PATIENT
  Age: 40 Year
  Sex: Female
  Weight: 67 kg

DRUGS (3)
  1. NEXPLANON [Suspect]
     Indication: CONTRACEPTION
     Dosage: UNK
     Route: 058
     Dates: start: 20110501
  2. ALCOHOL [Interacting]
  3. SUBUTEX [Concomitant]
     Indication: ALCOHOLISM
     Dosage: UNK
     Route: 048

REACTIONS (3)
  - Abortion spontaneous [Unknown]
  - Drug interaction [Unknown]
  - Unintended pregnancy [Recovered/Resolved]
